FAERS Safety Report 25001340 (Version 1)
Quarter: 2025Q1

REPORT INFORMATION
  Report Type: Spontaneous
  Country: CA (occurrence: CA)
  Receive Date: 20250223
  Receipt Date: 20250223
  Transmission Date: 20250409
  Serious: Yes (Hospitalization)
  Sender: ROCHE
  Company Number: CA-ROCHE-10000214162

PATIENT
  Sex: Female

DRUGS (13)
  1. OCREVUS [Suspect]
     Active Substance: OCRELIZUMAB
     Indication: Multiple sclerosis
     Route: 042
     Dates: start: 20230217
  2. PANTOPRAZOLE [Concomitant]
     Active Substance: PANTOPRAZOLE
  3. CARVEDILOL [Concomitant]
     Active Substance: CARVEDILOL
  4. ENTRESTO [Concomitant]
     Active Substance: SACUBITRIL\VALSARTAN
  5. SPIRONOLACTONE [Concomitant]
     Active Substance: SPIRONOLACTONE
  6. ZOPICLONE [Concomitant]
     Active Substance: ZOPICLONE
  7. REPATHA [Concomitant]
     Active Substance: EVOLOCUMAB
  8. KRILL OIL [Concomitant]
     Active Substance: DIETARY SUPPLEMENT\KRILL OIL
  9. MELATONIN [Concomitant]
     Active Substance: MELATONIN
  10. SENOKOT [Concomitant]
     Active Substance: SENNOSIDES
  11. GLICLAZIDE [Concomitant]
     Active Substance: GLICLAZIDE
  12. SITAGLIPTIN [Concomitant]
     Active Substance: SITAGLIPTIN
  13. DAPAGLIFLOZIN [Concomitant]
     Active Substance: DAPAGLIFLOZIN

REACTIONS (1)
  - Abscess limb [Recovered/Resolved]
